FAERS Safety Report 10196551 (Version 1)
Quarter: 2014Q2

REPORT INFORMATION
  Report Type: Spontaneous
  Country: US (occurrence: US)
  Receive Date: 20140527
  Receipt Date: 20140527
  Transmission Date: 20141212
  Serious: No
  Sender: FDA-Public Use
  Company Number: US-PFIZER INC-2014141732

PATIENT
  Age: 61 Year
  Sex: Male
  Weight: 85.3 kg

DRUGS (5)
  1. NEURONTIN [Suspect]
     Indication: NEUROPATHY PERIPHERAL
     Dosage: 400 MG, 6X/DAY
     Route: 048
     Dates: start: 1998
  2. NEURONTIN [Suspect]
     Dosage: 800 MG, 5X/DAY
  3. NEURONTIN [Suspect]
     Dosage: UNK
  4. VITAMIN B6 [Concomitant]
     Dosage: 200 MG, 1X/DAY
     Dates: start: 1997
  5. XANAX [Concomitant]
     Dosage: UNK

REACTIONS (8)
  - Drug intolerance [Unknown]
  - Burning sensation [Unknown]
  - Sensory loss [Unknown]
  - Hypoaesthesia [Unknown]
  - Dysstasia [Unknown]
  - Discomfort [Unknown]
  - Drug ineffective [Unknown]
  - Vision blurred [Unknown]
